FAERS Safety Report 8544378-6 (Version None)
Quarter: 2012Q2

REPORT INFORMATION
  Report Type: 
  Country: None (occurrence: None)
  Receive Date: 20120416
  Receipt Date: 20100528
  Transmission Date: 20120825
  Serious: Yes (Other)
  Sender: FDA-Public Use
  Company Number: PHHY2010US35433

PATIENT
  Sex: Male

DRUGS (2)
  1. COREG [Suspect]
  2. DIOVAN [Suspect]
     Dosage: 80 MG

REACTIONS (4)
  - GAIT DISTURBANCE [None]
  - ASTHENIA [None]
  - HYPOTENSION [None]
  - FATIGUE [None]
